FAERS Safety Report 23041982 (Version 1)
Quarter: 2023Q4

REPORT INFORMATION
  Report Type: Spontaneous
  Country: None (occurrence: CN)
  Receive Date: 20231007
  Receipt Date: 20231007
  Transmission Date: 20240109
  Serious: Yes (Life-Threatening, Other)
  Sender: FDA-Public Use
  Company Number: CN-Jiangsu Hengrui Medicine Co., Ltd.-2146811

PATIENT
  Age: 3 Year
  Sex: Female

DRUGS (5)
  1. CYCLOPHOSPHAMIDE [Suspect]
     Active Substance: CYCLOPHOSPHAMIDE
     Indication: Chemotherapy
     Dates: start: 20210912, end: 20210916
  2. IRINOTECAN HYDROCHLORIDE [Suspect]
     Active Substance: IRINOTECAN HYDROCHLORIDE
     Dates: start: 20210912, end: 20210914
  3. ETOPOSIDE [Suspect]
     Active Substance: ETOPOSIDE
     Dates: start: 20211104, end: 20211106
  4. CISPLATIN [Suspect]
     Active Substance: CISPLATIN
     Dates: start: 20211104, end: 20211107
  5. NEDAPLATIN [Suspect]
     Active Substance: NEDAPLATIN
     Dates: start: 20211201, end: 20211203

REACTIONS (2)
  - Cardiac failure [Recovering/Resolving]
  - Myelosuppression [Recovered/Resolved]

NARRATIVE: CASE EVENT DATE: 20220222
